FAERS Safety Report 24379217 (Version 1)
Quarter: 2024Q3

REPORT INFORMATION
  Report Type: Other
  Country: US (occurrence: US)
  Receive Date: 20240930
  Receipt Date: 20240930
  Transmission Date: 20241016
  Serious: Yes (Other)
  Sender: COREPHARMA
  Company Number: US-CorePharma LLC-2162222

PATIENT
  Age: 71 Year
  Sex: Female

DRUGS (5)
  1. LISINOPRIL [Suspect]
     Active Substance: LISINOPRIL
     Indication: Product used for unknown indication
  2. CARBOPLATIN [Suspect]
     Active Substance: CARBOPLATIN
  3. PEMBROLIZUMAB [Suspect]
     Active Substance: PEMBROLIZUMAB
  4. MOXIFLOXACIN [Suspect]
     Active Substance: MOXIFLOXACIN
  5. PEMETREXED [Suspect]
     Active Substance: PEMETREXED

REACTIONS (2)
  - Tubulointerstitial nephritis [Recovered/Resolved]
  - Renal tubular necrosis [Recovered/Resolved]
